FAERS Safety Report 22050617 (Version 2)
Quarter: 2023Q1

REPORT INFORMATION
  Report Type: Report from Study
  Country: US (occurrence: US)
  Receive Date: 20230301
  Receipt Date: 20230303
  Transmission Date: 20230418
  Serious: No
  Sender: FDA-Public Use
  Company Number: US-002147023-NVSC2023US047341

PATIENT
  Sex: Male

DRUGS (1)
  1. KISQALI [Suspect]
     Active Substance: RIBOCICLIB
     Indication: Product used for unknown indication
     Dosage: UNK, (1 PILL 3 TIMES PER DAY)
     Route: 048

REACTIONS (4)
  - Fatigue [Unknown]
  - Constipation [Unknown]
  - Back pain [Unknown]
  - Inappropriate schedule of product administration [Unknown]
